FAERS Safety Report 7909650-9 (Version None)
Quarter: 2011Q4

REPORT INFORMATION
  Report Type: 
  Country: None (occurrence: None)
  Receive Date: 20111111
  Receipt Date: 20111107
  Transmission Date: 20120403
  Serious: Yes (Other)
  Sender: FDA-Public Use
  Company Number: US-GLAXOSMITHKLINE-A0952193A

PATIENT
  Age: 40 Year
  Sex: Female

DRUGS (2)
  1. VALTREX [Suspect]
     Indication: GENITAL HERPES
     Dosage: 1000MG PER DAY
     Route: 048
     Dates: start: 20110630, end: 20110714
  2. NO CONCURRENT MEDICATION [Concomitant]

REACTIONS (4)
  - OBSESSIVE-COMPULSIVE DISORDER [None]
  - HALLUCINATION [None]
  - DEPRESSION [None]
  - ANXIETY [None]
